FAERS Safety Report 8209439-X (Version None)
Quarter: 2012Q1

REPORT INFORMATION
  Report Type: 
  Country: None (occurrence: None)
  Receive Date: 20120314
  Receipt Date: 20120308
  Transmission Date: 20120608
  Serious: Yes (Death, Other)
  Sender: FDA-Public Use
  Company Number: FR-CELGENEUS-056-21880-12031015

PATIENT

DRUGS (1)
  1. REVLIMID [Suspect]
     Dosage: 5-10 MG
     Route: 048

REACTIONS (9)
  - PANCYTOPENIA [None]
  - FATIGUE [None]
  - OEDEMA [None]
  - DISEASE PROGRESSION [None]
  - INFECTION [None]
  - THROMBOCYTOPENIA [None]
  - NEUTROPENIA [None]
  - NO THERAPEUTIC RESPONSE [None]
  - ACUTE MYELOID LEUKAEMIA [None]
